FAERS Safety Report 15699046 (Version 5)
Quarter: 2020Q4

REPORT INFORMATION
  Report Type: Spontaneous
  Country: JP (occurrence: JP)
  Receive Date: 20181207
  Receipt Date: 20201124
  Transmission Date: 20210113
  Serious: Yes (Other)
  Sender: FDA-Public Use
  Company Number: JP-009507513-1812JPN000136J

PATIENT
  Age: 56 Year
  Sex: Male

DRUGS (3)
  1. TRANEXAMIC ACID. [Concomitant]
     Active Substance: TRANEXAMIC ACID
     Indication: UPPER RESPIRATORY TRACT INFLAMMATION
     Dosage: UNK
     Route: 048
     Dates: start: 20180822, end: 20180829
  2. RESPLEN [Concomitant]
     Active Substance: EPRAZINONE
     Indication: UPPER RESPIRATORY TRACT INFLAMMATION
     Dosage: UNK
     Route: 048
     Dates: start: 20180822, end: 20180829
  3. DESALEX TABLETS 5MG [Suspect]
     Active Substance: DESLORATADINE
     Indication: UPPER RESPIRATORY TRACT INFLAMMATION
     Dosage: 5 MILLIGRAM, QD
     Route: 048
     Dates: start: 20180822, end: 20180829

REACTIONS (2)
  - Alopecia areata [Recovered/Resolved]
  - Product use issue [Unknown]

NARRATIVE: CASE EVENT DATE: 20180822
